FAERS Safety Report 17554832 (Version 1)
Quarter: 2020Q1

REPORT INFORMATION
  Report Type: Spontaneous
  Country: US (occurrence: US)
  Receive Date: 20200318
  Receipt Date: 20200318
  Transmission Date: 20200409
  Serious: Yes (Hospitalization, Other)
  Sender: FDA-Public Use
  Company Number: US-ELI_LILLY_AND_COMPANY-US202003005794

PATIENT
  Age: 63 Year
  Sex: Male

DRUGS (3)
  1. HUMALOG MIX75/25 [Suspect]
     Active Substance: INSULIN LISPRO
     Indication: TYPE 2 DIABETES MELLITUS
     Dosage: 4 DOSAGE FORM, DAILY
     Route: 065
  2. SEROQUEL [Concomitant]
     Active Substance: QUETIAPINE FUMARATE
     Indication: PRODUCT USED FOR UNKNOWN INDICATION
     Dosage: UNK, DAILY (BEDTIME)
  3. TRILENE [Concomitant]
     Indication: PRODUCT USED FOR UNKNOWN INDICATION
     Dosage: UNK UNK, DAILY(BEDTIME)

REACTIONS (4)
  - Balance disorder [Not Recovered/Not Resolved]
  - Brain injury [Unknown]
  - Feeling abnormal [Not Recovered/Not Resolved]
  - Aneurysm [Recovering/Resolving]

NARRATIVE: CASE EVENT DATE: 20200227
